FAERS Safety Report 4876832-2 (Version None)
Quarter: 2006Q1

REPORT INFORMATION
  Report Type: 
  Country: None (occurrence: None)
  Receive Date: 20060110
  Receipt Date: 20050425
  Transmission Date: 20060701
  Serious: Yes (Life-Threatening, Hospitalization)
  Sender: FDA-Public Use
  Company Number: 2005GB00812

PATIENT
  Age: 24323 Day
  Sex: Female

DRUGS (7)
  1. NOLVADEX [Suspect]
     Indication: BREAST CANCER
     Route: 048
     Dates: start: 19981223, end: 20031223
  2. QUININE SULPHATE [Concomitant]
     Indication: MUSCLE SPASMS
     Route: 048
     Dates: start: 19990504
  3. CO-DYDRAMOL [Concomitant]
     Indication: ARTHRITIS
     Route: 048
     Dates: start: 20011218
  4. FUROSEMIDE [Concomitant]
     Indication: CHRONIC OBSTRUCTIVE PULMONARY DISEASE
     Route: 048
     Dates: start: 19990624
  5. PULMICORT [Concomitant]
     Indication: CHRONIC OBSTRUCTIVE PULMONARY DISEASE
     Dosage: 2 PUFF BID PRN
     Route: 055
     Dates: start: 19990628
  6. TERBUTALINE [Concomitant]
     Indication: CHRONIC OBSTRUCTIVE PULMONARY DISEASE
     Route: 055
     Dates: start: 19990624
  7. IPRATROPIUM BROMIDE [Concomitant]
     Indication: CHRONIC OBSTRUCTIVE PULMONARY DISEASE
     Route: 048
     Dates: start: 19990628

REACTIONS (2)
  - PELVIC MASS [None]
  - PERITONEAL CARCINOMA [None]
